FAERS Safety Report 7639112-8 (Version None)
Quarter: 2011Q3

REPORT INFORMATION
  Report Type: 
  Country: None (occurrence: None)
  Receive Date: 20110727
  Receipt Date: 20110719
  Transmission Date: 20111222
  Serious: Yes (Disabling, Other)
  Sender: FDA-Public Use
  Company Number: PHHY2011IT62069

PATIENT
  Sex: Male

DRUGS (9)
  1. DEXAMETHASONE [Concomitant]
  2. REVLIMID [Concomitant]
  3. SIMVASTATIN [Concomitant]
  4. ZOMETA [Suspect]
     Indication: MULTIPLE MYELOMA
     Route: 042
     Dates: start: 20090101, end: 20110627
  5. URODIE [Concomitant]
     Route: 048
  6. LANSOPRAZOLE [Concomitant]
  7. ASPIRIN [Concomitant]
  8. DOMPERIDONE [Concomitant]
     Route: 048
  9. PROSCAR [Concomitant]
     Dosage: 5 MG
     Route: 048

REACTIONS (1)
  - OSTEONECROSIS OF JAW [None]
